FAERS Safety Report 7159169-0 (Version None)
Quarter: 2010Q4

REPORT INFORMATION
  Report Type: 
  Country: None (occurrence: None)
  Receive Date: 20101214
  Receipt Date: 20101202
  Transmission Date: 20110411
  Serious: Yes (Hospitalization)
  Sender: FDA-Public Use
  Company Number: US-ELI_LILLY_AND_COMPANY-US201006006069

PATIENT
  Sex: Female

DRUGS (15)
  1. FORTEO [Suspect]
     Indication: OSTEOPOROSIS
     Dosage: 20 UG, DAILY (1/D)
     Route: 065
  2. FORTEO [Suspect]
     Dosage: 20 UG, DAILY (1/D)
  3. MYLANTA [Concomitant]
  4. ASPIRIN [Concomitant]
     Dosage: 325 MG, DAILY (1/D)
  5. VITAMIN D [Concomitant]
     Dosage: UNK, 2/D
  6. CALCIUM [Concomitant]
     Dosage: UNK, 2/D
  7. MULTI-VITAMIN [Concomitant]
     Dosage: UNK, DAILY (1/D)
  8. SYNTHROID [Concomitant]
     Dosage: UNK, DAILY (1/D)
  9. PLAVIX [Concomitant]
     Dosage: UNK, DAILY (1/D)
  10. PRAVACHOL [Concomitant]
  11. FERROUS SULFATE [Concomitant]
  12. LEXAPRO [Concomitant]
  13. CARVEDILOL [Concomitant]
  14. SUCRALFATE [Concomitant]
     Dosage: UNK, DAILY (1/D)
  15. NITROGLYCERIN [Concomitant]
     Dosage: UNK, AS NEEDED

REACTIONS (13)
  - CHEST PAIN [None]
  - CONSTIPATION [None]
  - CONTUSION [None]
  - CYSTITIS [None]
  - DIARRHOEA [None]
  - DYSPEPSIA [None]
  - FATIGUE [None]
  - GASTROOESOPHAGEAL REFLUX DISEASE [None]
  - INJECTION SITE HAEMATOMA [None]
  - INJECTION SITE PAIN [None]
  - LIMB INJURY [None]
  - MUSCLE SPASMS [None]
  - MYOCARDIAL INFARCTION [None]
